FAERS Safety Report 5193950-2 (Version None)
Quarter: 2006Q4

REPORT INFORMATION
  Report Type: 
  Country: None (occurrence: None)
  Receive Date: 20061228
  Receipt Date: 20061218
  Transmission Date: 20070319
  Serious: Yes (Other)
  Sender: FDA-Public Use
  Company Number: SE-MERCK-0612SWE00024

PATIENT
  Age: 72 Year
  Sex: Female

DRUGS (6)
  1. PRIMAXIN [Suspect]
     Indication: NECROTISING ULCERATIVE GINGIVOSTOMATITIS
     Route: 041
     Dates: start: 20061107, end: 20061115
  2. FRAGMIN [Concomitant]
     Route: 065
  3. ACETAMINOPHEN [Concomitant]
     Route: 065
  4. PULMICORT [Concomitant]
     Route: 065
  5. DEXOFEN [Concomitant]
     Route: 065
  6. KETOGAN [Concomitant]
     Route: 065

REACTIONS (7)
  - ANAEMIA [None]
  - ECCHYMOSIS [None]
  - HAEMOLYSIS [None]
  - JAUNDICE [None]
  - RENAL FAILURE [None]
  - STEVENS-JOHNSON SYNDROME [None]
  - THROMBOCYTOPENIA [None]
